FAERS Safety Report 8564586-8 (Version None)
Quarter: 2012Q3

REPORT INFORMATION
  Report Type: 
  Country: None (occurrence: None)
  Receive Date: 20120727
  Receipt Date: 20120727
  Transmission Date: 20120928
  Serious: Yes (Other)
  Sender: FDA-Public Use
  Company Number: None

PATIENT
  Age: 4 Year
  Sex: Male
  Weight: 16.7831 kg

DRUGS (1)
  1. CEPHALEXIN [Suspect]
     Indication: INFECTION
     Dosage: 250 MG/5ML SUSP  2X A DAY PO, 3 DOSES
     Route: 048

REACTIONS (2)
  - LIP SWELLING [None]
  - ERYTHEMA [None]
